FAERS Safety Report 13438702 (Version 2)
Quarter: 2017Q3

REPORT INFORMATION
  Report Type: Spontaneous
  Country: US (occurrence: US)
  Receive Date: 20170412
  Receipt Date: 20170731
  Transmission Date: 20171127
  Serious: No
  Sender: FDA-Public Use
  Company Number: US-BAYER-2017-070334

PATIENT
  Age: 31 Year
  Sex: Female

DRUGS (1)
  1. FINACEA [Suspect]
     Active Substance: AZELAIC ACID
     Indication: ROSACEA
     Dosage: UNK
     Route: 061
     Dates: start: 20170210, end: 20170326

REACTIONS (3)
  - Skin disorder [None]
  - Rosacea [None]
  - Dermatitis contact [None]
